FAERS Safety Report 6016756-0 (Version None)
Quarter: 2008Q4

REPORT INFORMATION
  Report Type: 
  Country: None (occurrence: None)
  Receive Date: 20081222
  Receipt Date: 20081218
  Transmission Date: 20090506
  Serious: Yes (Other)
  Sender: FDA-Public Use
  Company Number: DE-B.I. PHARMACEUTICALS,INC./RIDGEFIELD-2008-DE-07824DE

PATIENT
  Sex: Male

DRUGS (6)
  1. SPIRIVA 18 MIKROGRAMM KAPSEL MIT INHALATIONSPULVER [Suspect]
     Route: 055
  2. CARVEDIOL 25 MG [Concomitant]
     Indication: HYPERTENSION
     Dosage: INTAKE IN THE MORNING 04:30 H
  3. KARVEA 300 MG [Concomitant]
     Indication: HYPERTENSION
     Dosage: INTAKE IN THE MORNING 09:30 H
  4. TARKA [Concomitant]
     Indication: HYPERTENSION
     Dosage: INTAKE AT MIDDAY 12:30 H 180 / 2 MG
  5. LONITEN 10 MG [Concomitant]
     Indication: HYPERTENSION
     Dosage: INTAKE IN THE EVENING 17:30 H
  6. RASILEZ 300 MG [Concomitant]
     Indication: HYPERTENSION
     Dosage: INTAKE AT THE NIGHT 21:00 H

REACTIONS (5)
  - BLOOD PRESSURE INCREASED [None]
  - FEAR OF DISEASE [None]
  - HEADACHE [None]
  - VISUAL ACUITY REDUCED [None]
  - VISUAL FIELD DEFECT [None]
